FAERS Safety Report 15539049 (Version 2)
Quarter: 2018Q4

REPORT INFORMATION
  Report Type: Spontaneous
  Country: FR (occurrence: FR)
  Receive Date: 20181022
  Receipt Date: 20181116
  Transmission Date: 20190205
  Serious: Yes (Hospitalization)
  Sender: FDA-Public Use
  Company Number: PHHY2018FR131218

PATIENT
  Sex: Male

DRUGS (7)
  1. CORTANCYL [Concomitant]
     Active Substance: PREDNISONE
     Dosage: 1 OT, QD (10 UNITS NOT REPORTED, ONCE DAILY)
     Route: 065
     Dates: start: 20170923, end: 20170928
  2. CORTANCYL [Concomitant]
     Active Substance: PREDNISONE
     Indication: IMMUNOSUPPRESSANT DRUG THERAPY
     Dosage: 1 OT, QD (20 UNITS NOT REPORTED, ONCE DAILY)
     Route: 065
     Dates: start: 20170904, end: 20170915
  3. CORTANCYL [Concomitant]
     Active Substance: PREDNISONE
     Dosage: 1 OT, QD (5 UNITS NOT REPORTED, ONCE DAILY)
     Route: 065
     Dates: start: 20170929, end: 20171029
  4. TACROLIMUS. [Suspect]
     Active Substance: TACROLIMUS
     Indication: PROPHYLAXIS
     Dosage: 15 MG, QD
     Route: 048
     Dates: start: 20170918
  5. TACROLIMUS. [Suspect]
     Active Substance: TACROLIMUS
     Dosage: 9 MG, QD
     Route: 048
     Dates: start: 20171105
  6. CORTANCYL [Concomitant]
     Active Substance: PREDNISONE
     Dosage: 1 OT, QD (15 UNITS NOT REPORTED, ONCE DAILY)
     Route: 065
     Dates: start: 20170916, end: 20170922
  7. CELLCEPT [Concomitant]
     Active Substance: MYCOPHENOLATE MOFETIL\MYCOPHENOLATE MOFETIL HYDROCHLORIDE
     Indication: IMMUNOSUPPRESSANT DRUG THERAPY
     Dosage: 1 OT, QD (1500 UNITS NOT REPORTED, ONCE DAILY)
     Route: 065
     Dates: start: 20170904

REACTIONS (2)
  - Urinary tract infection [Recovered/Resolved]
  - Urinary tract infection [Recovered/Resolved]

NARRATIVE: CASE EVENT DATE: 20171006
